FAERS Safety Report 8210971-3 (Version None)
Quarter: 2012Q1

REPORT INFORMATION
  Report Type: 
  Country: None (occurrence: None)
  Receive Date: 20120315
  Receipt Date: 20120302
  Transmission Date: 20120608
  Serious: Yes (Other)
  Sender: FDA-Public Use
  Company Number: FR-JNJFOC-20120302731

PATIENT
  Age: 24 Year
  Sex: Female

DRUGS (4)
  1. REMICADE [Suspect]
     Indication: CROHN'S DISEASE
     Route: 042
     Dates: start: 20111107
  2. REMICADE [Suspect]
     Route: 042
     Dates: start: 20120220, end: 20120220
  3. CORTICOSTEROID [Concomitant]
     Route: 065
  4. PREDNISOLONE [Concomitant]
     Route: 065

REACTIONS (6)
  - INFUSION RELATED REACTION [None]
  - HEADACHE [None]
  - FEELING ABNORMAL [None]
  - TACHYCARDIA [None]
  - HYPERSENSITIVITY [None]
  - BLOOD PRESSURE INCREASED [None]
